FAERS Safety Report 24909629 (Version 1)
Quarter: 2025Q1

REPORT INFORMATION
  Report Type: Spontaneous
  Country: US (occurrence: US)
  Receive Date: 20250131
  Receipt Date: 20250131
  Transmission Date: 20250408
  Serious: Yes (Hospitalization)
  Sender: PARI RESPIRATORY EQUIPMENT
  Company Number: US-PARI RESPIRATORY EQUIPMENT, INC.-2025PAR00009

PATIENT
  Sex: Male

DRUGS (6)
  1. KITABIS PAK [Suspect]
     Active Substance: TOBRAMYCIN
     Indication: Cystic fibrosis
     Dosage: 300 MG (5 ML) TWICE A DAY FOR 28 DAYS ON AND 28 DAYS OFF
     Dates: start: 20210522
  2. PULMOZYME [Concomitant]
     Active Substance: DORNASE ALFA
  3. SYNAGIS [Concomitant]
     Active Substance: PALIVIZUMAB
  4. SYNAGIS [Concomitant]
     Active Substance: PALIVIZUMAB
  5. TRIKAFTA [Concomitant]
     Active Substance: ELEXACAFTOR\IVACAFTOR\TEZACAFTOR
  6. URSODIOL [Concomitant]
     Active Substance: URSODIOL

REACTIONS (1)
  - Gastric haemorrhage [Unknown]
